FAERS Safety Report 7510151-0 (Version None)
Quarter: 2011Q2

REPORT INFORMATION
  Report Type: 
  Country: None (occurrence: None)
  Receive Date: 20110527
  Receipt Date: 20110523
  Transmission Date: 20111010
  Serious: Yes (Death, Other)
  Sender: FDA-Public Use
  Company Number: ES-ASTRAZENECA-2010SE26106

PATIENT
  Age: 74 Year
  Sex: Female

DRUGS (7)
  1. SINTROM [Concomitant]
     Route: 048
     Dates: start: 20070101
  2. CRESTOR [Suspect]
     Indication: HYPERCHOLESTEROLAEMIA
     Route: 048
     Dates: start: 20100305, end: 20100316
  3. FENOFIBRATE [Interacting]
     Indication: HYPERCHOLESTEROLAEMIA
     Route: 048
     Dates: start: 20100305, end: 20100316
  4. FENOFIBRATE [Interacting]
     Dosage: 160 MG/DAILY
     Route: 048
  5. EUTIROX [Concomitant]
     Route: 048
     Dates: start: 20070101
  6. PANTOPRAZOL [Concomitant]
     Route: 048
     Dates: start: 20070101
  7. AMIODARONE HCL [Concomitant]
     Indication: ATRIAL FIBRILLATION
     Route: 048
     Dates: start: 20100304

REACTIONS (2)
  - DRUG INTERACTION [None]
  - RHABDOMYOLYSIS [None]
